FAERS Safety Report 4432493-8 (Version None)
Quarter: 2004Q3

REPORT INFORMATION
  Report Type: 
  Country: None (occurrence: None)
  Receive Date: 20040817
  Receipt Date: 20040805
  Transmission Date: 20050211
  Serious: Yes (Other)
  Sender: FDA-Public Use
  Company Number: 200410278BBE

PATIENT
  Age: 31 Year
  Sex: Male

DRUGS (7)
  1. KOATE [Suspect]
     Indication: FACTOR VIII DEFICIENCY
     Dates: start: 19780101, end: 19790101
  2. KOATE [Suspect]
     Indication: FACTOR VIII DEFICIENCY
     Dates: start: 19820101, end: 19830101
  3. KOATE [Suspect]
     Indication: FACTOR VIII DEFICIENCY
     Dates: start: 19870101
  4. HEMOFIL [Suspect]
     Indication: FACTOR VIII DEFICIENCY
     Dates: start: 19780101, end: 19790101
  5. HEMOFIL [Suspect]
     Indication: FACTOR VIII DEFICIENCY
     Dates: start: 19860101
  6. PROFILATE [Suspect]
     Indication: FACTOR VIII DEFICIENCY
     Dates: start: 19840101, end: 19870101
  7. FACTORATE (FACTOR VIII (ANTIHAEMOPHILIC FACTOR)) [Suspect]
     Indication: FACTOR VIII DEFICIENCY
     Dates: start: 19790101, end: 19860101

REACTIONS (2)
  - HEPATITIS C VIRUS [None]
  - HIV TEST POSITIVE [None]
